FAERS Safety Report 7645789-3 (Version None)
Quarter: 2011Q3

REPORT INFORMATION
  Report Type: 
  Country: None (occurrence: None)
  Receive Date: 20110729
  Receipt Date: 20110720
  Transmission Date: 20111222
  Serious: Yes (Other)
  Sender: FDA-Public Use
  Company Number: US-ASTRAZENECA-2011SE43233

PATIENT
  Sex: Male
  Weight: 113.4 kg

DRUGS (7)
  1. IPRAT-ALBUT [Concomitant]
     Indication: CHRONIC OBSTRUCTIVE PULMONARY DISEASE
     Dosage: 0.5-3 FOUR HOURLY
     Route: 055
     Dates: start: 20080601
  2. NASONEX [Concomitant]
     Indication: SINUS DISORDER
     Route: 045
     Dates: start: 20110501
  3. SYMBICORT [Suspect]
     Indication: ASTHMA
     Dosage: 10.2GM BID
     Route: 055
     Dates: start: 20070601
  4. SYMBICORT [Suspect]
     Indication: CHRONIC OBSTRUCTIVE PULMONARY DISEASE
     Dosage: 10.2GM BID
     Route: 055
     Dates: start: 20070601
  5. SINGULAIR [Concomitant]
     Indication: CHRONIC OBSTRUCTIVE PULMONARY DISEASE
     Route: 048
     Dates: start: 20080601
  6. IPRAT-ALBUT [Concomitant]
     Indication: ASTHMA
     Dosage: 0.5-3 FOUR HOURLY
     Route: 055
     Dates: start: 20080601
  7. SINGULAIR [Concomitant]
     Indication: ASTHMA
     Route: 048
     Dates: start: 20080601

REACTIONS (2)
  - CATARACT OPERATION [None]
  - CATARACT [None]
